FAERS Safety Report 8960928 (Version 2)
Quarter: 2013Q1

REPORT INFORMATION
  Report Type: Spontaneous
  Country: JP (occurrence: JP)
  Receive Date: 20121212
  Receipt Date: 20130313
  Transmission Date: 20140127
  Serious: Yes (Other)
  Sender: FDA-Public Use
  Company Number: JP-PFIZER INC-2012309952

PATIENT
  Age: 7 Decade
  Sex: Male

DRUGS (6)
  1. CISPLATIN [Suspect]
     Indication: HEPATOCELLULAR CARCINOMA
     Dosage: LFP THERAPY: 5-10MG FOR 30 MIN ON D1-5 EVERY W
     Route: 013
  2. CISPLATIN [Suspect]
     Dosage: LFP THERAPY: BI-WEEKLY ADMINISTRATION
     Route: 013
  3. FLUOROURACIL [Suspect]
     Indication: HEPATOCELLULAR CARCINOMA
     Dosage: LEP THERAPY: CONTINUOUS 1250MG FOR 5D EVERY W
     Route: 013
  4. FLUOROURACIL [Suspect]
     Dosage: LFP THERAPY: BI-WEEKLY ADMINISTRATION
     Route: 013
  5. SORAFENIB [Suspect]
     Indication: HEPATOCELLULAR CARCINOMA
     Dosage: AS MONOTHERAPY, 400 MG, 2X/DAY
     Route: 065
  6. SORAFENIB [Suspect]
     Dosage: WITH BI-WEEKLY LFP THERAPY (200 MG,2 IN 1 D)
     Route: 065

REACTIONS (1)
  - Hepatic artery thrombosis [Recovered/Resolved]
